FAERS Safety Report 21804604 (Version 1)
Quarter: 2023Q1

REPORT INFORMATION
  Report Type: Spontaneous
  Country: US (occurrence: US)
  Receive Date: 20230102
  Receipt Date: 20230102
  Transmission Date: 20230417
  Serious: No
  Sender: FDA-Public Use
  Company Number: US-GLAXOSMITHKLINE-USCH2022048067

PATIENT
  Age: 56 Year

DRUGS (3)
  1. SENSODYNE PRONAMEL INTENSIVE ENAMEL REPAIR CLEAN MINT [Suspect]
     Active Substance: POTASSIUM NITRATE\SODIUM FLUORIDE
     Indication: Product used for unknown indication
     Dosage: UNK
     Dates: start: 20221203, end: 20221222
  2. ADVIL [Suspect]
     Active Substance: IBUPROFEN
     Indication: Lip swelling
     Dosage: UNK
     Dates: start: 202212
  3. ADVIL [Suspect]
     Active Substance: IBUPROFEN
     Indication: Hypersensitivity

REACTIONS (3)
  - Lip swelling [Unknown]
  - Hypersensitivity [Unknown]
  - Product use in unapproved indication [Unknown]

NARRATIVE: CASE EVENT DATE: 20221201
